APPROVED DRUG PRODUCT: CARDENE
Active Ingredient: NICARDIPINE HYDROCHLORIDE
Strength: 25MG/10ML (2.5MG/ML) **Federal Register determination that product was not discontinued or withdrawn for safety or effectiveness reasons**
Dosage Form/Route: INJECTABLE;INJECTION
Application: N019734 | Product #001 | TE Code: AP
Applicant: CHIESI USA INC
Approved: Jan 30, 1992 | RLD: Yes | RS: No | Type: RX